FAERS Safety Report 4635825-0 (Version None)
Quarter: 2005Q2

REPORT INFORMATION
  Report Type: 
  Country: None (occurrence: None)
  Receive Date: 20050413
  Receipt Date: 20050322
  Transmission Date: 20051028
  Serious: Yes (Hospitalization, Other)
  Sender: FDA-Public Use
  Company Number: US_0407104133

PATIENT
  Age: 49 Year
  Sex: Female
  Weight: 88 kg

DRUGS (17)
  1. ZYPREXA [Suspect]
     Indication: DEPRESSION
     Dosage: 20 MG
     Dates: start: 20021009, end: 20041115
  2. PAXIL [Concomitant]
  3. GLUCOPHAGE [Concomitant]
  4. HYZAAR [Concomitant]
  5. ALBUTEROL [Concomitant]
  6. FLOVENT [Concomitant]
  7. VIOX (ROFECOXIB) [Concomitant]
  8. ZANAFLEX [Concomitant]
  9. NEURONTIN (GABAPENTIN PFIZER) [Concomitant]
  10. NORVASC [Concomitant]
  11. BUSPIRONE HCL [Concomitant]
  12. DIPHENHYDRAMINE HCL [Concomitant]
  13. NIFEDIPINE [Concomitant]
  14. ENALAPRIL MALEATE [Concomitant]
  15. SEREVENT DISKUS (SALMETEROL XINAFOATE) [Concomitant]
  16. CELEBREX [Concomitant]
  17. CYCLOBENZAPRINE HCL [Concomitant]

REACTIONS (12)
  - ABNORMAL BEHAVIOUR [None]
  - AMNESIA [None]
  - ASTHMA [None]
  - BLOOD PRESSURE INCREASED [None]
  - CARDIAC DISORDER [None]
  - DIABETES MELLITUS [None]
  - EMOTIONAL DISTRESS [None]
  - LOSS OF CONSCIOUSNESS [None]
  - NAUSEA [None]
  - PAIN [None]
  - SCREAMING [None]
  - WEIGHT INCREASED [None]
